FAERS Safety Report 6018623-5 (Version None)
Quarter: 2008Q4

REPORT INFORMATION
  Report Type: 
  Country: None (occurrence: None)
  Receive Date: 20081223
  Receipt Date: 20081216
  Transmission Date: 20090506
  Serious: Yes (Other)
  Sender: FDA-Public Use
  Company Number: CA-AMGEN-US324346

PATIENT

DRUGS (1)
  1. VECTIBIX [Suspect]
     Indication: NEOPLASM MALIGNANT

REACTIONS (4)
  - DYSPNOEA [None]
  - TYPE IV HYPERSENSITIVITY REACTION [None]
  - URTICARIA [None]
  - WHEEZING [None]
